FAERS Safety Report 10158624 (Version 2)
Quarter: 2014Q2

REPORT INFORMATION
  Report Type: Spontaneous
  Country: US (occurrence: US)
  Receive Date: 20140508
  Receipt Date: 20140526
  Transmission Date: 20141212
  Serious: Yes (Hospitalization)
  Sender: FDA-Public Use
  Company Number: US-MERCK-1405USA003367

PATIENT
  Age: 70 Year
  Sex: Male

DRUGS (10)
  1. JANUVIA [Suspect]
     Indication: TYPE 2 DIABETES MELLITUS
     Dosage: 50 MG DAILY FOR ONE YEAR
     Route: 048
  2. ACETAMINOPHEN [Concomitant]
     Route: 048
  3. ASPIRIN [Concomitant]
  4. CITALOPRAM [Concomitant]
  5. DOCUSATE SODIUM [Concomitant]
  6. LEVOTHYROXINE SODIUM [Concomitant]
     Route: 048
  7. PRINIVIL [Concomitant]
  8. METFORMIN [Concomitant]
  9. OXYTROL FOR WOMEN [Concomitant]
  10. ZOCOR [Concomitant]
     Route: 048

REACTIONS (1)
  - Pemphigoid [Recovered/Resolved]
